FAERS Safety Report 12048240 (Version 2)
Quarter: 2016Q1

REPORT INFORMATION
  Report Type: Spontaneous
  Country: US (occurrence: US)
  Receive Date: 20160208
  Receipt Date: 20160219
  Transmission Date: 20160526
  Serious: Yes (Hospitalization, Other)
  Sender: FDA-Public Use
  Company Number: US-BAXALTA-2016BLT000523

PATIENT
  Age: 77 Year
  Sex: Male

DRUGS (3)
  1. GAMMAGARD LIQUID [Suspect]
     Active Substance: HUMAN IMMUNOGLOBULIN G
     Indication: PNEUMONIA
     Dosage: UNK
     Dates: start: 20151218
  2. GAMMAGARD LIQUID [Suspect]
     Active Substance: HUMAN IMMUNOGLOBULIN G
     Indication: IMMUNOGLOBULIN THERAPY
     Dosage: UNK
     Dates: start: 20151218
  3. GAMMAGARD LIQUID [Suspect]
     Active Substance: HUMAN IMMUNOGLOBULIN G
     Indication: CHRONIC LYMPHOCYTIC LEUKAEMIA
     Dosage: 47.5 G, FIRST DOSE
     Route: 042
     Dates: start: 20151218

REACTIONS (4)
  - Confusional state [Unknown]
  - Seizure [Recovered/Resolved]
  - Disorientation [Recovered/Resolved]
  - Meningioma [Unknown]

NARRATIVE: CASE EVENT DATE: 20151218
